FAERS Safety Report 24356836 (Version 1)
Quarter: 2024Q3

REPORT INFORMATION
  Report Type: Spontaneous
  Country: US (occurrence: US)
  Receive Date: 20240924
  Receipt Date: 20240924
  Transmission Date: 20241016
  Serious: Yes (Hospitalization, Other)
  Sender: OXFORD PHARMACEUTICALS
  Company Number: US-Oxford Pharmaceuticals, LLC-2161977

PATIENT
  Age: 52 Year
  Sex: Male

DRUGS (1)
  1. TIZANIDINE HYDROCHLORIDE [Suspect]
     Active Substance: TIZANIDINE HYDROCHLORIDE
     Indication: Back pain

REACTIONS (10)
  - Hypertensive emergency [Unknown]
  - Agitation [Unknown]
  - Mental status changes [Unknown]
  - Intentional product misuse [Unknown]
  - Anxiety [Unknown]
  - Tachycardia [Unknown]
  - Hyperhidrosis [Unknown]
  - Withdrawal syndrome [Unknown]
  - Acute kidney injury [Unknown]
  - Acute myocardial infarction [Unknown]
